FAERS Safety Report 8534316-4 (Version None)
Quarter: 2012Q3

REPORT INFORMATION
  Report Type: 
  Country: None (occurrence: None)
  Receive Date: 20120724
  Receipt Date: 20120717
  Transmission Date: 20120928
  Serious: Yes (Hospitalization)
  Sender: FDA-Public Use
  Company Number: JP-VERTEX PHARMACEUTICALS INC.-AE-2012-005198

PATIENT
  Age: 47 Year
  Sex: Male

DRUGS (10)
  1. REBETOL [Concomitant]
     Route: 048
     Dates: start: 20120307, end: 20120313
  2. REBETOL [Concomitant]
     Route: 048
     Dates: start: 20120314, end: 20120327
  3. REBETOL [Concomitant]
     Route: 048
     Dates: start: 20120328, end: 20120403
  4. PEG-INTRON [Concomitant]
     Indication: HEPATITIS C
     Route: 058
     Dates: start: 20120210
  5. ACETAMINOPHEN [Concomitant]
     Route: 048
     Dates: start: 20120217, end: 20120303
  6. REBETOL [Concomitant]
     Indication: HEPATITIS C
     Route: 048
     Dates: start: 20120210, end: 20120306
  7. TELAVIC (TELAPREVIR) [Suspect]
     Indication: HEPATITIS C
     Route: 048
     Dates: start: 20120210, end: 20120306
  8. REBETOL [Concomitant]
     Route: 048
     Dates: start: 20120404
  9. TELAVIC (TELAPREVIR) [Suspect]
     Route: 048
     Dates: start: 20120307
  10. LORFENAMIN [Concomitant]
     Indication: PROPHYLAXIS
     Route: 048
     Dates: start: 20120210, end: 20120214

REACTIONS (1)
  - BLOOD CREATININE INCREASED [None]
